FAERS Safety Report 4607108-6 (Version None)
Quarter: 2005Q1

REPORT INFORMATION
  Report Type: 
  Country: None (occurrence: None)
  Receive Date: 20050314
  Receipt Date: 20050301
  Transmission Date: 20050727
  Serious: Yes (Death, Hospitalization, Other)
  Sender: FDA-Public Use
  Company Number: CA-AMGEN-US118224

PATIENT
  Sex: Female

DRUGS (2)
  1. ENBREL [Suspect]
     Indication: RHEUMATOID ARTHRITIS
     Route: 058
     Dates: start: 20041201, end: 20050208
  2. METHOTREXATE [Concomitant]
     Dates: start: 20040901, end: 20050208

REACTIONS (2)
  - PANCYTOPENIA [None]
  - PNEUMONIA [None]
